FAERS Safety Report 7356991-2 (Version None)
Quarter: 2011Q1

REPORT INFORMATION
  Report Type: 
  Country: None (occurrence: None)
  Receive Date: 20110317
  Receipt Date: 20110309
  Transmission Date: 20110831
  Serious: No
  Sender: FDA-Public Use
  Company Number: US-BIOGENIDEC-2011BI009171

PATIENT
  Sex: Female

DRUGS (2)
  1. ADDERALL 10 [Concomitant]
     Indication: NARCOLEPSY
  2. AVONEX [Suspect]
     Indication: MULTIPLE SCLEROSIS
     Route: 030
     Dates: start: 20010529

REACTIONS (10)
  - VISUAL IMPAIRMENT [None]
  - MUSCLE SPASMS [None]
  - PAIN [None]
  - MULTIPLE SCLEROSIS RELAPSE [None]
  - BALANCE DISORDER [None]
  - DYSARTHRIA [None]
  - COORDINATION ABNORMAL [None]
  - BACK PAIN [None]
  - PERIPHERAL COLDNESS [None]
  - GAIT DISTURBANCE [None]
